FAERS Safety Report 4747972-3 (Version None)
Quarter: 2005Q3

REPORT INFORMATION
  Report Type: 
  Country: None (occurrence: None)
  Receive Date: 20050816
  Receipt Date: 20050727
  Transmission Date: 20060218
  Serious: Yes (Other)
  Sender: FDA-Public Use
  Company Number: DSA_26802_2005

PATIENT
  Sex: Female

DRUGS (1)
  1. ATIVAN [Suspect]
     Dosage: 2 MG TID PO
     Route: 048

REACTIONS (7)
  - AMNESIA [None]
  - ANXIETY [None]
  - BRAIN DAMAGE [None]
  - DRUG INEFFECTIVE [None]
  - HEADACHE [None]
  - LOSS OF CONSCIOUSNESS [None]
  - STOMACH DISCOMFORT [None]
